FAERS Safety Report 8977875 (Version 4)
Quarter: 2013Q1

REPORT INFORMATION
  Report Type: Spontaneous
  Country: US (occurrence: US)
  Receive Date: 20121220
  Receipt Date: 20130117
  Transmission Date: 20140127
  Serious: Yes (Other)
  Sender: FDA-Public Use
  Company Number: PHEH2012US024199

PATIENT
  Age: 38 Year
  Sex: Female
  Weight: 107.3 kg

DRUGS (6)
  1. GILENYA [Suspect]
     Indication: MULTIPLE SCLEROSIS
     Dosage: 0.5 MG, QD
     Route: 048
     Dates: start: 20120308
  2. ZONEGRAN [Concomitant]
     Dosage: 100 MG, UNK
     Route: 048
  3. AMITRIPTYLINE [Concomitant]
     Dosage: 75 MG, QHS
     Route: 048
  4. DIOVAN HCT [Concomitant]
     Dosage: 160-25 QD
     Route: 048
  5. METHADONE [Concomitant]
     Dosage: 5 MG, BID
     Route: 048
  6. TOPROL XL [Concomitant]
     Dosage: 50 MG, QD
     Route: 048

REACTIONS (5)
  - Visual impairment [Recovering/Resolving]
  - Optic neuritis [Recovering/Resolving]
  - Multiple sclerosis relapse [Recovering/Resolving]
  - Muscular weakness [Unknown]
  - Muscle spasticity [Unknown]
